FAERS Safety Report 22259959 (Version 10)
Quarter: 2025Q1

REPORT INFORMATION
  Report Type: Spontaneous
  Country: US (occurrence: US)
  Receive Date: 20230427
  Receipt Date: 20250116
  Transmission Date: 20250409
  Serious: Yes (Other)
  Sender: PFIZER
  Company Number: US-PFIZER INC-PV202300074213

PATIENT
  Age: 71 Year
  Sex: Male
  Weight: 116.12 kg

DRUGS (1)
  1. TIKOSYN [Suspect]
     Active Substance: DOFETILIDE
     Indication: Atrial fibrillation
     Dosage: 250 UG, 2X/DAY (2 CAPSULES OF 125MG,  ORALLY TWICE A DAY 90 DAYS)
     Route: 048

REACTIONS (2)
  - Neuropathy peripheral [Unknown]
  - Impaired driving ability [Unknown]
